FAERS Safety Report 4304102-X (Version None)
Quarter: 2004Q1

REPORT INFORMATION
  Report Type: 
  Country: None (occurrence: None)
  Receive Date: 20040223
  Receipt Date: 20031216
  Transmission Date: 20041129
  Serious: No
  Sender: FDA-Public Use
  Company Number: PHEH2003US11499

PATIENT
  Age: 81 Year
  Sex: Female

DRUGS (3)
  1. ZELNORM [Suspect]
     Indication: IRRITABLE BOWEL SYNDROME
     Dosage: 6 MG, QD, ORAL
     Route: 048
     Dates: start: 20030401
  2. METAMUCIL ^SEARLE^ (PSYLLIUM HYDROPHILIC MUCILLOID) [Concomitant]
  3. DAILY VITAMINS (VITAMINS NOS) [Concomitant]

REACTIONS (2)
  - ABDOMINAL DISTENSION [None]
  - WEIGHT DECREASED [None]
